FAERS Safety Report 5154377-2 (Version None)
Quarter: 2006Q4

REPORT INFORMATION
  Report Type: 
  Country: None (occurrence: None)
  Receive Date: 20061114
  Receipt Date: 20061101
  Transmission Date: 20070319
  Serious: Yes (Hospitalization, Disabling, Other)
  Sender: FDA-Public Use
  Company Number: 2006034003

PATIENT
  Age: 46 Year
  Sex: Female

DRUGS (4)
  1. ALPRAZOLAM [Suspect]
     Indication: PANIC REACTION
     Dosage: 2 MG (1 MG, 2 IN 1 D), ORAL
     Route: 048
     Dates: start: 19870101
  2. CELEBREX [Suspect]
     Indication: TOOTHACHE
     Dosage: 400 TO 600 MILLIGRAMS (200 MG, 2 TO 3 TIMES A DAY), ORAL
     Route: 048
     Dates: start: 20060901
  3. DIOVAN HCT [Concomitant]
  4. GLUCOVANCE [Concomitant]

REACTIONS (6)
  - ARTHRITIS [None]
  - IATROGENIC INJURY [None]
  - INFLAMMATION [None]
  - LEG AMPUTATION [None]
  - MENISCUS LESION [None]
  - TOOTHACHE [None]
